FAERS Safety Report 8374229-4 (Version None)
Quarter: 2012Q2

REPORT INFORMATION
  Report Type: 
  Country: None (occurrence: None)
  Receive Date: 20120521
  Receipt Date: 20120517
  Transmission Date: 20120825
  Serious: No
  Sender: FDA-Public Use
  Company Number: US-MERCK-1204USA02587

PATIENT
  Age: 75 Year
  Sex: Female

DRUGS (19)
  1. MUCINEX [Concomitant]
     Route: 065
  2. FEXOFENADINE HYDROCHLORIDE [Concomitant]
     Route: 065
  3. XOPENEX [Concomitant]
     Route: 065
  4. JANUVIA [Suspect]
     Indication: DIABETES MELLITUS
     Route: 048
     Dates: start: 20120306, end: 20120423
  5. SINGULAIR [Concomitant]
     Route: 048
  6. CELEBREX [Concomitant]
     Route: 065
  7. OXYBUTYNIN [Concomitant]
     Route: 065
  8. PULMICORT [Concomitant]
     Route: 055
  9. DOC-Q-LACE [Concomitant]
     Route: 065
  10. CLONIDINE [Concomitant]
     Route: 065
  11. ALLEGRA [Concomitant]
     Route: 065
  12. LOSARTAN POTASSIUM [Concomitant]
     Route: 065
  13. OMEPRAZOLE [Concomitant]
     Route: 065
  14. LEVOTHYROXINE SODIUM [Concomitant]
     Route: 065
  15. MACROBID (CLARITHROMYCIN) [Concomitant]
     Route: 065
  16. JANUVIA [Suspect]
     Indication: BLOOD GLUCOSE ABNORMAL
     Route: 048
     Dates: start: 20120306, end: 20120423
  17. AMIODARONE [Concomitant]
     Route: 065
  18. LIPITOR [Concomitant]
     Route: 065
  19. FUROSEMIDE [Concomitant]
     Route: 065

REACTIONS (6)
  - DRY MOUTH [None]
  - NASAL CONGESTION [None]
  - DYSPNOEA [None]
  - HYPERTENSION [None]
  - DRY THROAT [None]
  - SUFFOCATION FEELING [None]
